FAERS Safety Report 4979358-0 (Version None)
Quarter: 2006Q2

REPORT INFORMATION
  Report Type: 
  Country: None (occurrence: None)
  Receive Date: 20060421
  Receipt Date: 20050309
  Transmission Date: 20061013
  Serious: Yes (Hospitalization, Other)
  Sender: FDA-Public Use
  Company Number: US-MERCK-0503USA02048

PATIENT
  Age: 62 Year
  Sex: Male
  Weight: 86 kg

DRUGS (17)
  1. VIOXX [Suspect]
     Indication: ARTHRITIS
     Route: 048
     Dates: start: 19990816, end: 20010403
  2. TOPROL-XL [Concomitant]
     Route: 065
     Dates: start: 19980504
  3. METOPROLOL [Concomitant]
     Route: 065
     Dates: start: 19980504
  4. CARDURA [Concomitant]
     Route: 065
     Dates: start: 19980331, end: 20001024
  5. ASPIRIN [Concomitant]
     Route: 065
     Dates: start: 20001201
  6. PREVACID [Concomitant]
     Route: 065
  7. QUININE SULFATE [Concomitant]
     Route: 065
  8. CYCLOBENZAPRINE HYDROCHLORIDE [Concomitant]
     Route: 065
  9. HYDROCODONE BITARTRATE [Concomitant]
     Route: 065
  10. LEVAQUIN [Concomitant]
     Route: 065
  11. PRILOSEC [Concomitant]
     Route: 065
  12. ZITHROMAX [Concomitant]
     Route: 065
  13. FLONASE [Concomitant]
     Route: 065
  14. OXYCODONE [Concomitant]
     Route: 065
  15. DIAZEPAM [Concomitant]
     Route: 065
  16. PACERONE [Concomitant]
     Route: 065
  17. ZOCOR [Concomitant]
     Route: 065
     Dates: start: 20010130, end: 20010627

REACTIONS (19)
  - ANXIETY [None]
  - ATRIAL FIBRILLATION [None]
  - CARDIAC DISORDER [None]
  - CARDIAC FAILURE CONGESTIVE [None]
  - CHEST PAIN [None]
  - DEPRESSION [None]
  - FEELING ABNORMAL [None]
  - GASTRIC ULCER [None]
  - GASTROOESOPHAGEAL REFLUX DISEASE [None]
  - GOUT [None]
  - HIGH DENSITY LIPOPROTEIN DECREASED [None]
  - INFECTION [None]
  - INJURY [None]
  - INSOMNIA [None]
  - ISCHAEMIA [None]
  - MALARIA [None]
  - MYOCARDIAL INFARCTION [None]
  - PNEUMONIA [None]
  - TRANSIENT ISCHAEMIC ATTACK [None]
